FAERS Safety Report 9336381 (Version 1)
Quarter: 2013Q2

REPORT INFORMATION
  Report Type: Spontaneous
  Country: US (occurrence: US)
  Receive Date: 20130607
  Receipt Date: 20130607
  Transmission Date: 20140414
  Serious: No
  Sender: FDA-Public Use
  Company Number: US-009507513-1305USA017932

PATIENT
  Age: 48 Year
  Sex: Male

DRUGS (7)
  1. PEGINTRON [Suspect]
     Indication: HEPATITIS C
     Dosage: 150 MICROGRAM, QW
  2. RIBASPHERE [Suspect]
  3. TELAPREVIR [Suspect]
  4. JANUMET [Concomitant]
  5. FUROSEMIDE [Concomitant]
  6. ALDACTONE TABLETS [Concomitant]
  7. ASPIRIN [Concomitant]

REACTIONS (2)
  - Therapy responder [Unknown]
  - Full blood count decreased [Recovering/Resolving]
